FAERS Safety Report 4681015-5 (Version None)
Quarter: 2005Q2

REPORT INFORMATION
  Report Type: 
  Country: None (occurrence: None)
  Receive Date: 20050601
  Receipt Date: 20050516
  Transmission Date: 20051028
  Serious: Yes (Hospitalization)
  Sender: FDA-Public Use
  Company Number: COT_0070_2005

PATIENT
  Age: 58 Year
  Sex: Female
  Weight: 115 kg

DRUGS (4)
  1. ILOPROST [Suspect]
     Dosage: 5 MCG Q2HR IH
     Route: 055
  2. ADVAIR [Concomitant]
  3. DIGOXIN [Concomitant]
  4. ATIVAN [Concomitant]

REACTIONS (3)
  - DIARRHOEA [None]
  - NAUSEA [None]
  - VOMITING [None]
